FAERS Safety Report 10744115 (Version 2)
Quarter: 2015Q1

REPORT INFORMATION
  Report Type: Report from Study
  Country: MX (occurrence: MX)
  Receive Date: 20150128
  Receipt Date: 20150210
  Transmission Date: 20150721
  Serious: Yes (Other)
  Sender: FDA-Public Use
  Company Number: PHHY2014MX078927

PATIENT
  Age: 69 Year
  Sex: Female
  Weight: 76 kg

DRUGS (7)
  1. EXFORGE HCT [Suspect]
     Active Substance: AMLODIPINE BESYLATE\HYDROCHLOROTHIAZIDE\VALSARTAN
     Dosage: 0.5 DF, QD
     Route: 048
  2. CRESTOR [Concomitant]
     Active Substance: ROSUVASTATIN CALCIUM
     Indication: BLOOD CHOLESTEROL ABNORMAL
     Dosage: 1 DF, QD (AT NIGHT)
     Route: 048
  3. ASPIRIN PROTECT [Concomitant]
     Active Substance: ASPIRIN
     Indication: ANTICOAGULANT THERAPY
     Dosage: 1 DF, UNK
     Route: 065
  4. CONCOR [Concomitant]
     Active Substance: BISOPROLOL FUMARATE
     Indication: CARDIAC DISORDER
     Dosage: 1 DF, QD (AT NOON)
     Route: 065
     Dates: start: 201311
  5. EXFORGE HCT [Suspect]
     Active Substance: AMLODIPINE BESYLATE\HYDROCHLOROTHIAZIDE\VALSARTAN
     Indication: HYPERTENSION
     Dosage: 1 DF, QD
     Route: 048
  6. CLOPIDOGREL [Concomitant]
     Active Substance: CLOPIDOGREL BISULFATE
     Indication: CARDIOVASCULAR DISORDER
     Dosage: 1 DF, QD (AT 14:00)
     Route: 065
     Dates: start: 201311
  7. ASPIRIN PROTECT [Concomitant]
     Active Substance: ASPIRIN
     Indication: CARDIOVASCULAR DISORDER

REACTIONS (15)
  - Influenza [Not Recovered/Not Resolved]
  - Wrong technique in drug usage process [Not Recovered/Not Resolved]
  - Drug intolerance [Not Recovered/Not Resolved]
  - Cough [Not Recovered/Not Resolved]
  - Liver disorder [Unknown]
  - Dry mouth [Not Recovered/Not Resolved]
  - Gastritis [Not Recovered/Not Resolved]
  - Dyspepsia [Not Recovered/Not Resolved]
  - Feeling abnormal [Recovered/Resolved]
  - Productive cough [Not Recovered/Not Resolved]
  - Blood pressure decreased [Recovered/Resolved]
  - Anxiety [Unknown]
  - Off label use [Unknown]
  - Infarction [Not Recovered/Not Resolved]
  - Throat irritation [Not Recovered/Not Resolved]

NARRATIVE: CASE EVENT DATE: 201311
